FAERS Safety Report 6711775-0 (Version None)
Quarter: 2010Q2

REPORT INFORMATION
  Report Type: 
  Country: None (occurrence: None)
  Receive Date: 20100505
  Receipt Date: 20100427
  Transmission Date: 20101027
  Serious: Yes (Other)
  Sender: FDA-Public Use
  Company Number: B0649257A

PATIENT
  Age: 73 Year
  Sex: Male

DRUGS (1)
  1. VALTREX [Suspect]
     Indication: HERPES ZOSTER
     Dosage: 500MG TWICE PER DAY
     Route: 048
     Dates: start: 20100417, end: 20100419

REACTIONS (3)
  - DELIRIUM [None]
  - FEELING ABNORMAL [None]
  - PSYCHIATRIC SYMPTOM [None]
